FAERS Safety Report 18216353 (Version 3)
Quarter: 2020Q3

REPORT INFORMATION
  Report Type: Other
  Country: US (occurrence: US)
  Receive Date: 20200901
  Receipt Date: 20200921
  Transmission Date: 20201103
  Serious: Yes (Other)
  Sender: FDA-Public Use
  Company Number: US-ROCHE-2669598

PATIENT
  Age: 64 Year
  Sex: Female
  Weight: 168 kg

DRUGS (2)
  1. XOLAIR [Suspect]
     Active Substance: OMALIZUMAB
     Indication: ASTHMA
     Route: 065
     Dates: start: 2003, end: 201905
  2. XOLAIR [Suspect]
     Active Substance: OMALIZUMAB
     Dosage: LAST THREE INJECTIONS BEING 02/ MAY/2020, 21/MAY/2020 AND 06/JUN/2020
     Route: 065
     Dates: start: 202005, end: 20200606

REACTIONS (2)
  - Anaphylactic reaction [Recovered/Resolved]
  - Anaphylactic shock [Unknown]

NARRATIVE: CASE EVENT DATE: 202002
